FAERS Safety Report 6797743-1 (Version None)
Quarter: 2010Q2

REPORT INFORMATION
  Report Type: 
  Country: None (occurrence: None)
  Receive Date: 20100623
  Receipt Date: 20100524
  Transmission Date: 20101027
  Serious: Yes (Hospitalization)
  Sender: FDA-Public Use
  Company Number: IT-SOLVAY-00310003316

PATIENT
  Age: 40 Year
  Sex: Male

DRUGS (2)
  1. FLUVOXAMINE MALEATE [Suspect]
     Indication: POISONING DELIBERATE
     Dosage: 1 GRAM(S); ORAL
     Route: 048
     Dates: start: 20100416, end: 20100416
  2. RISPERDAL [Suspect]
     Indication: POISONING DELIBERATE
     Dosage: 60 MILLIGRAM(S); ORAL
     Route: 048
     Dates: start: 20100416, end: 20100416

REACTIONS (2)
  - OVERDOSE [None]
  - POISONING DELIBERATE [None]
